FAERS Safety Report 19768375 (Version 1)
Quarter: 2021Q3

REPORT INFORMATION
  Report Type: Other
  Country: US (occurrence: US)
  Receive Date: 20210831
  Receipt Date: 20210831
  Transmission Date: 20211014
  Serious: Yes (Other)
  Sender: FDA-Public Use
  Company Number: US-ROCHE-2872106

PATIENT
  Sex: Female
  Weight: 65.38 kg

DRUGS (18)
  1. HYDRALAZINE [Concomitant]
     Active Substance: HYDRALAZINE HYDROCHLORIDE
     Dosage: FOR 30 DAYS
     Route: 048
  2. TAXOTERE [Concomitant]
     Active Substance: DOCETAXEL
  3. HYDROCHLOROTHIAZIDE. [Concomitant]
     Active Substance: HYDROCHLOROTHIAZIDE
     Dosage: FOR 30 DAYS
     Route: 048
  4. HERCEPTIN [Suspect]
     Active Substance: TRASTUZUMAB
     Indication: BREAST CANCER FEMALE
     Route: 042
  5. POTASSIUM CHLORIDE ER [Concomitant]
     Active Substance: POTASSIUM CHLORIDE
     Dosage: 2 TAB FOR 3 DAYS
     Route: 048
  6. FUROSEMIDE. [Concomitant]
     Active Substance: FUROSEMIDE
     Route: 048
  7. DEXAMETHASONE. [Concomitant]
     Active Substance: DEXAMETHASONE
     Route: 042
     Dates: start: 20190614
  8. KADCYLA [Suspect]
     Active Substance: ADO-TRASTUZUMAB EMTANSINE
     Indication: ENDOMETRIAL CANCER
     Route: 042
     Dates: start: 20190614
  9. CARBOPLATIN. [Concomitant]
     Active Substance: CARBOPLATIN
  10. KADCYLA [Suspect]
     Active Substance: ADO-TRASTUZUMAB EMTANSINE
     Indication: BREAST CANCER FEMALE
     Route: 042
  11. LEVOTHYROXINE. [Concomitant]
     Active Substance: LEVOTHYROXINE
     Dosage: 100 MCG, FOR 30 DAYS
     Route: 048
     Dates: start: 20200401
  12. DIPHENHYDRAMINE. [Concomitant]
     Active Substance: DIPHENHYDRAMINE
     Route: 042
     Dates: start: 20190614
  13. LOVASTATIN. [Concomitant]
     Active Substance: LOVASTATIN
     Dosage: FOR 90 DAYS
     Route: 048
  14. MAGNESIUM OXIDE. [Concomitant]
     Active Substance: MAGNESIUM OXIDE
     Dosage: 1 TAB 2 TIMES A DAY FOR FOR 30 DAYS
     Route: 048
  15. ASPIRIN EC [Concomitant]
     Active Substance: ASPIRIN
     Dosage: FOR 30 DAYS
     Route: 048
  16. AMLODIPINE [Concomitant]
     Active Substance: AMLODIPINE BESYLATE
     Dosage: FOR 30 DAYS
     Route: 048
  17. PERJETA [Suspect]
     Active Substance: PERTUZUMAB
     Indication: BREAST CANCER FEMALE
     Route: 042
  18. LOSARTAN. [Concomitant]
     Active Substance: LOSARTAN
     Dosage: FOR 90 DAYS
     Route: 048

REACTIONS (8)
  - Diarrhoea [Unknown]
  - Anaemia [Unknown]
  - Nausea [Unknown]
  - Hypokalaemia [Unknown]
  - Hypoaesthesia [Unknown]
  - Hypomagnesaemia [Unknown]
  - Fatigue [Unknown]
  - Vomiting [Unknown]
